FAERS Safety Report 24773234 (Version 1)
Quarter: 2024Q4

REPORT INFORMATION
  Report Type: Spontaneous
  Country: ES (occurrence: ES)
  Receive Date: 20241225
  Receipt Date: 20241225
  Transmission Date: 20250114
  Serious: Yes (Life-Threatening)
  Sender: ROCHE
  Company Number: None

PATIENT
  Age: 27 Year
  Sex: Female

DRUGS (1)
  1. OCREVUS [Suspect]
     Active Substance: OCRELIZUMAB
     Indication: Multiple sclerosis
     Dosage: 1 VIAL OF 10 ML
     Route: 065
     Dates: start: 20220624

REACTIONS (1)
  - Ovarian cancer [Recovered/Resolved with Sequelae]

NARRATIVE: CASE EVENT DATE: 20240624
